FAERS Safety Report 9637403 (Version 1)
Quarter: 2013Q4

REPORT INFORMATION
  Report Type: Report from Study
  Country: FR (occurrence: FR)
  Receive Date: 20131022
  Receipt Date: 20131022
  Transmission Date: 20140711
  Serious: Yes (Hospitalization)
  Sender: FDA-Public Use
  Company Number: FR-MILLENNIUM PHARMACEUTICALS, INC.-2013JNJ000614

PATIENT
  Sex: 0

DRUGS (14)
  1. VELCADE [Suspect]
     Indication: AMYLOIDOSIS
     Route: 065
  2. MELPHALAN [Suspect]
     Indication: AMYLOIDOSIS
     Dosage: 20 MG, CYCLIC
     Route: 048
     Dates: start: 20130716, end: 20130918
  3. DEXAMETHASONE [Suspect]
     Indication: AMYLOIDOSIS
     Dosage: 40 MG, CYCLIC
     Route: 048
     Dates: start: 20130716, end: 20130928
  4. LEDERFOLINE [Concomitant]
  5. PREVISCAN                          /00261401/ [Concomitant]
  6. ZELITREX [Concomitant]
  7. ATACAND [Concomitant]
  8. FUROSEMIDE [Concomitant]
  9. CRESTOR [Concomitant]
  10. DIFFU-K [Concomitant]
  11. ORACILLINE                         /00001801/ [Concomitant]
  12. BACTRIM [Concomitant]
  13. UROREC [Concomitant]
  14. TEMERIT [Concomitant]

REACTIONS (1)
  - Generalised oedema [Recovering/Resolving]
